FAERS Safety Report 6019541-9 (Version None)
Quarter: 2008Q4

REPORT INFORMATION
  Report Type: 
  Country: None (occurrence: None)
  Receive Date: 20081222
  Receipt Date: 20080917
  Transmission Date: 20090506
  Serious: Yes (Other)
  Sender: FDA-Public Use
  Company Number: US-WYE-H06024608

PATIENT
  Age: 30 Year
  Sex: Female
  Weight: 45.4 kg

DRUGS (1)
  1. LYBREL [Suspect]
     Indication: CONTRACEPTION
     Dosage: 1 TABLET 1X PER 1 DAY, ORAL
     Route: 048
     Dates: start: 20071114, end: 20080901

REACTIONS (2)
  - DRUG INEFFECTIVE [None]
  - UNINTENDED PREGNANCY [None]
